FAERS Safety Report 24328307 (Version 1)
Quarter: 2024Q3

REPORT INFORMATION
  Report Type: Report from Study
  Country: US (occurrence: None)
  Receive Date: 20240917
  Receipt Date: 20240917
  Transmission Date: 20241016
  Serious: Yes (Other)
  Sender: ASTRAZENECA
  Company Number: 2024A207839

PATIENT
  Age: 84 Year
  Sex: Male
  Weight: 104 kg

DRUGS (1)
  1. CALQUENCE [Suspect]
     Active Substance: ACALABRUTINIB
     Indication: Chronic lymphocytic leukaemia
     Route: 048
     Dates: start: 20240607

REACTIONS (6)
  - Fall [Not Recovered/Not Resolved]
  - Limb injury [Not Recovered/Not Resolved]
  - Blood viscosity abnormal [Not Recovered/Not Resolved]
  - Lymphatic disorder [Not Recovered/Not Resolved]
  - Lymphoedema [Not Recovered/Not Resolved]
  - Product dose omission in error [Recovered/Resolved]
